FAERS Safety Report 8535375 (Version 2)
Quarter: 2013Q1

REPORT INFORMATION
  Report Type: Spontaneous
  Country: DE (occurrence: None)
  Receive Date: 20120419
  Receipt Date: 20130313
  Transmission Date: 20140127
  Serious: Yes (Other)
  Sender: FDA-Public Use
  Company Number: AEDEU201100341

PATIENT
  Age: 56 Year
  Sex: Female

DRUGS (5)
  1. PROLASTIN [Suspect]
     Dosage: 4000 MG;IV
     Route: 042
  2. BERODUAL [Concomitant]
  3. FLUTICASONE PROPIONATE\SALMETEROL XINAFOATE [Concomitant]
  4. PREDNISONE [Concomitant]
  5. CALCIMAGON /00751501/ [Concomitant]

REACTIONS (2)
  - DERMATITIS ALLERGIC [None]
  - URTICARIA [None]
